FAERS Safety Report 8140614-9 (Version None)
Quarter: 2012Q1

REPORT INFORMATION
  Report Type: 
  Country: None (occurrence: None)
  Receive Date: 20120216
  Receipt Date: 20120206
  Transmission Date: 20120608
  Serious: Yes (Other)
  Sender: FDA-Public Use
  Company Number: US-SANOFI-AVENTIS-2012SA007941

PATIENT
  Age: 60 Year
  Sex: Male
  Weight: 102 kg

DRUGS (6)
  1. LANTUS [Suspect]
     Dosage: LANTUS START DATE APPROXIMATELY 4 YEARS AGO DOSE:60 UNIT(S)
     Route: 058
     Dates: start: 20080101
  2. NOVOLOG [Concomitant]
  3. ACTOS [Concomitant]
  4. SOLOSTAR [Suspect]
  5. GLUCOPHAGE [Concomitant]
  6. AMARYL [Concomitant]

REACTIONS (7)
  - NEOPLASM MALIGNANT [None]
  - WEIGHT DECREASED [None]
  - HYPOGLYCAEMIA [None]
  - MYOCARDIAL INFARCTION [None]
  - HYPOTENSION [None]
  - CATARACT [None]
  - ALOPECIA [None]
